FAERS Safety Report 24096608 (Version 2)
Quarter: 2024Q3

REPORT INFORMATION
  Report Type: Spontaneous
  Country: JP (occurrence: JP)
  Receive Date: 20240716
  Receipt Date: 20240724
  Transmission Date: 20241016
  Serious: Yes (Hospitalization)
  Sender: ELI LILLY AND CO
  Company Number: JP-ELI_LILLY_AND_COMPANY-JP202407003652

PATIENT
  Age: 75 Year
  Sex: Female

DRUGS (2)
  1. VERZENIO [Suspect]
     Active Substance: ABEMACICLIB
     Indication: Breast cancer recurrent
     Dosage: 50 MG, BID
     Route: 048
     Dates: start: 2021, end: 20240614
  2. LETROZOLE [Suspect]
     Active Substance: LETROZOLE
     Indication: Breast cancer recurrent
     Dosage: UNK
     Route: 048
     Dates: start: 2020

REACTIONS (2)
  - Pulmonary alveolar haemorrhage [Recovering/Resolving]
  - Herpes zoster [Unknown]

NARRATIVE: CASE EVENT DATE: 20240606
